FAERS Safety Report 7503211-1 (Version None)
Quarter: 2011Q2

REPORT INFORMATION
  Report Type: 
  Country: None (occurrence: None)
  Receive Date: 20110524
  Receipt Date: 20110524
  Transmission Date: 20111010
  Serious: Yes (Life-Threatening, Hospitalization, Disabling, Other)
  Sender: FDA-Public Use
  Company Number: None

PATIENT
  Age: 47 Year
  Sex: Female

DRUGS (4)
  1. ALLERX 30 DOSE PACK [Suspect]
     Indication: RHINITIS ALLERGIC
     Dosage: 2X DAILY BY MOUTH
  2. ALLERGY DN PE TABLETS [Suspect]
     Indication: RHINITIS ALLERGIC
     Dosage: 2X DAY BY MOUTH
     Route: 048
  3. CARDIZEM [Concomitant]
  4. TOPAMAX [Concomitant]

REACTIONS (11)
  - DEAFNESS [None]
  - HEART RATE INCREASED [None]
  - HYPOAESTHESIA [None]
  - HEADACHE [None]
  - HEMIPARESIS [None]
  - THINKING ABNORMAL [None]
  - DYSARTHRIA [None]
  - NECK PAIN [None]
  - MEMORY IMPAIRMENT [None]
  - PARAESTHESIA [None]
  - VISION BLURRED [None]
